FAERS Safety Report 13206917 (Version 1)
Quarter: 2017Q1

REPORT INFORMATION
  Report Type: Spontaneous
  Country: US (occurrence: US)
  Receive Date: 20170209
  Receipt Date: 20170209
  Transmission Date: 20170428
  Serious: No
  Sender: FDA-Public Use
  Company Number: US-SA-2016SA227445

PATIENT
  Age: 65 Year
  Sex: Female
  Weight: 70.8 kg

DRUGS (7)
  1. COENZYME Q10 [Concomitant]
     Active Substance: UBIDECARENONE
  2. CHONDROITIN [Concomitant]
     Active Substance: CHONDROITIN
  3. VITAMIN D [Concomitant]
     Active Substance: CHOLECALCIFEROL
  4. VITAMINS NOS [Concomitant]
     Active Substance: VITAMINS
  5. PRALUENT [Suspect]
     Active Substance: ALIROCUMAB
     Indication: BLOOD CHOLESTEROL INCREASED
     Route: 058
     Dates: start: 20161001, end: 20161115
  6. ALIROCUMAB PREFILLED PEN [Concomitant]
     Active Substance: ALIROCUMAB
     Dates: start: 20161001, end: 20161115
  7. GLUCOSAMINE [Concomitant]
     Active Substance: GLUCOSAMINE

REACTIONS (5)
  - Sinusitis [Recovering/Resolving]
  - Rhinorrhoea [Not Recovered/Not Resolved]
  - Fatigue [Recovering/Resolving]
  - Malaise [Recovering/Resolving]
  - Epistaxis [Recovering/Resolving]

NARRATIVE: CASE EVENT DATE: 20161101
